FAERS Safety Report 7610503-4 (Version None)
Quarter: 2011Q3

REPORT INFORMATION
  Report Type: 
  Country: None (occurrence: None)
  Receive Date: 20110715
  Receipt Date: 20101217
  Transmission Date: 20111222
  Serious: Yes (Death, Hospitalization, Other)
  Sender: FDA-Public Use
  Company Number: US-BAYER-200940033NA

PATIENT
  Age: 72 Year
  Sex: Male
  Weight: 96.145 kg

DRUGS (27)
  1. ASPIRIN [Concomitant]
     Dosage: 325 MG, QD
     Route: 048
  2. ANCEF [Concomitant]
     Dosage: 1 G, UNK
     Route: 042
     Dates: start: 20050826, end: 20050826
  3. ROMAZICON [Concomitant]
     Indication: SEDATION
     Dosage: UNK
     Dates: start: 20050830, end: 20050830
  4. NARCAN [Concomitant]
     Indication: SEDATION
     Dosage: 0.2 MG
     Route: 042
     Dates: start: 20050830, end: 20050830
  5. TOPROL-XL [Concomitant]
     Dosage: 200 MG, QD
     Route: 048
  6. TRASYLOL [Suspect]
     Dosage: 50 CC PER HOUR
     Route: 041
     Dates: start: 20050826, end: 20050826
  7. PLAVIX [Concomitant]
     Dosage: 75 MG, QD
     Route: 048
  8. NITROGLYCERIN [Concomitant]
     Dosage: 0.4 MG, PRN
     Route: 060
  9. NITROGLYCERIN [Concomitant]
     Dosage: UNK
     Route: 042
     Dates: start: 20050826
  10. PROTAMINE SULFATE [Concomitant]
     Dosage: 10MG/ML - 50 MG
     Route: 042
     Dates: start: 20050826, end: 20050826
  11. LIDOCAINE [Concomitant]
     Dosage: 100 MG, UNK
     Route: 042
     Dates: start: 20020826, end: 20020826
  12. RED BLOOD CELLS [Concomitant]
     Dosage: 2 U, UNK
     Route: 042
     Dates: start: 20050826, end: 20050826
  13. NORVASC [Concomitant]
     Dosage: 10 MG, QD
     Route: 048
  14. LANTUS [Concomitant]
     Dosage: 15 U, HS
     Route: 058
     Dates: start: 20050521
  15. DOBUTAMINE HCL [Concomitant]
     Dosage: UNK
     Route: 042
     Dates: start: 20020614, end: 20020614
  16. BREVIBLOC [Concomitant]
     Dosage: 100 MG PRIME
     Dates: start: 20050826
  17. CLONIDINE [Concomitant]
     Dosage: 0.2 MG, BID
     Route: 048
  18. HEPARIN [Concomitant]
     Dosage: 5000 UNK, UNK
     Route: 058
     Dates: start: 20050521
  19. HEPARIN [Concomitant]
     Dosage: UNK
  20. MILRINONE [Concomitant]
     Dosage: .375 MCG/KG/MINUTE
     Route: 042
     Dates: start: 20050826
  21. ALTACE [Concomitant]
     Dosage: 10 MG, QD
     Route: 048
  22. VYTORIN [Concomitant]
     Dosage: 10/40 MG DAILY
     Route: 048
  23. LASIX [Concomitant]
     Dosage: 40 MG, QD
     Route: 048
  24. AVANDIA [Concomitant]
     Dosage: 4 G, QD
     Route: 048
  25. EPINEPHRINE [Concomitant]
     Dosage: UNK
     Route: 042
     Dates: start: 20050826
  26. CARDENE [Concomitant]
     Dosage: UNK
     Route: 042
     Dates: start: 20050826
  27. TRASYLOL [Suspect]
     Indication: CORONARY ARTERY BYPASS
     Dosage: 200 ML PRIME
     Route: 042
     Dates: start: 20050826, end: 20050826

REACTIONS (13)
  - PAIN [None]
  - INJURY [None]
  - RENAL IMPAIRMENT [None]
  - UNEVALUABLE EVENT [None]
  - FEAR [None]
  - EMOTIONAL DISTRESS [None]
  - STRESS [None]
  - MULTI-ORGAN FAILURE [None]
  - RENAL INJURY [None]
  - RENAL FAILURE [None]
  - DEATH [None]
  - ANXIETY [None]
  - ANHEDONIA [None]
